FAERS Safety Report 5242827-2 (Version None)
Quarter: 2007Q1

REPORT INFORMATION
  Report Type: 
  Country: None (occurrence: None)
  Receive Date: 20070214
  Receipt Date: 20070202
  Transmission Date: 20070707
  Serious: Yes (Hospitalization)
  Sender: FDA-Public Use
  Company Number: MEDI-0005379

PATIENT
  Sex: Male

DRUGS (2)
  1. ETHYOL [Suspect]
     Dosage: 500 MG, SUBCUTANEOUS; 7 DOSES
     Route: 058
  2. CARBOTAXOL (PACITAXEL, CARBOPLATIN) [Concomitant]

REACTIONS (2)
  - RASH GENERALISED [None]
  - SEPSIS [None]
